FAERS Safety Report 10433815 (Version 1)
Quarter: 2014Q3

REPORT INFORMATION
  Report Type: Spontaneous
  Country: US (occurrence: None)
  Receive Date: 20140815
  Receipt Date: 20140815
  Transmission Date: 20150326
  Serious: No
  Sender: FDA-Public Use
  Company Number: A-US2014-099942

PATIENT
  Age: 63 Year
  Sex: Female

DRUGS (12)
  1. KLOR-CON (POTASSIUM CHLORIDE) [Concomitant]
  2. GLUMETZA [Concomitant]
     Active Substance: METFORMIN HYDROCHLORIDE
  3. OPSUMIT [Suspect]
     Active Substance: MACITENTAN
     Indication: PULMONARY ARTERIAL HYPERTENSION
     Route: 048
     Dates: start: 20140519
  4. CARTIA XT (DILTIAZEM SODIUM SESQUIHYDRATE) [Concomitant]
  5. REVATIO (SILDENAFIL CITRATE) [Concomitant]
  6. LEVEMIR [Concomitant]
     Active Substance: INSULIN DETEMIR
  7. LOSARTAN [Concomitant]
     Active Substance: LOSARTAN
  8. PROTONIX [Concomitant]
     Active Substance: PANTOPRAZOLE SODIUM
  9. PREDNISONE. [Concomitant]
     Active Substance: PREDNISONE
  10. GLIMEPIRIDE. [Concomitant]
     Active Substance: GLIMEPIRIDE
  11. FUROSEMIDE. [Concomitant]
     Active Substance: FUROSEMIDE
  12. SYNTHROID [Concomitant]
     Active Substance: LEVOTHYROXINE SODIUM

REACTIONS (6)
  - Headache [None]
  - Local swelling [None]
  - Fluid retention [None]
  - Condition aggravated [None]
  - Weight increased [None]
  - Dyspnoea [None]
